FAERS Safety Report 7064550-4 (Version None)
Quarter: 2010Q4

REPORT INFORMATION
  Report Type: 
  Country: None (occurrence: None)
  Receive Date: 20101027
  Receipt Date: 20101021
  Transmission Date: 20110411
  Serious: Yes (Death, Hospitalization, Other)
  Sender: FDA-Public Use
  Company Number: IN-PFIZER INC-2010075057

PATIENT
  Age: 47 Year
  Sex: Male

DRUGS (1)
  1. SUTENT [Suspect]
     Indication: METASTATIC RENAL CELL CARCINOMA
     Dosage: 50 MG, 1X/DAY
     Route: 048

REACTIONS (7)
  - CONVULSION [None]
  - DEATH [None]
  - HALLUCINATION [None]
  - HEMIPARESIS [None]
  - PERICARDIAL EFFUSION [None]
  - PULMONARY CONGESTION [None]
  - UPPER LIMB FRACTURE [None]
